FAERS Safety Report 18926995 (Version 1)
Quarter: 2021Q1

REPORT INFORMATION
  Report Type: Spontaneous
  Country: US (occurrence: US)
  Receive Date: 20210222
  Receipt Date: 20210222
  Transmission Date: 20210420
  Serious: No
  Sender: FDA-Public Use
  Company Number: None

PATIENT
  Age: 53 Year
  Sex: Female

DRUGS (2)
  1. WANA SOUR GUMMIES EXOTIC YUZU CBD/THC [Suspect]
     Active Substance: CANNABIDIOL\.DELTA.8-TETRAHYDROCANNABINOL
     Indication: MIGRAINE
     Dosage: ?          QUANTITY:1 2/3 OF A PIECE;OTHER FREQUENCY:TOOK IN PM;?
     Route: 048
     Dates: start: 20201107, end: 20201107
  2. WANA SOUR GUMMIES EXOTIC YUZU CBD/THC [Suspect]
     Active Substance: CANNABIDIOL\.DELTA.8-TETRAHYDROCANNABINOL
     Indication: NECK PAIN
     Dosage: ?          QUANTITY:1 2/3 OF A PIECE;OTHER FREQUENCY:TOOK IN PM;?
     Route: 048
     Dates: start: 20201107, end: 20201107

REACTIONS (2)
  - Tremor [None]
  - Loss of consciousness [None]

NARRATIVE: CASE EVENT DATE: 20201107
